FAERS Safety Report 19588376 (Version 1)
Quarter: 2021Q3

REPORT INFORMATION
  Report Type: Spontaneous
  Country: US (occurrence: US)
  Receive Date: 20210720
  Receipt Date: 20210720
  Transmission Date: 20211014
  Serious: No
  Sender: FDA-Public Use
  Company Number: None

PATIENT
  Age: 66 Year
  Sex: Female
  Weight: 53.98 kg

DRUGS (1)
  1. MESALAMINE 1000MG SUPP. [Suspect]
     Active Substance: MESALAMINE
     Indication: COLITIS ULCERATIVE
     Dates: start: 20200920, end: 20210401

REACTIONS (6)
  - Abdominal pain [None]
  - Drug ineffective [None]
  - Symptom recurrence [None]
  - Frequent bowel movements [None]
  - Rectal haemorrhage [None]
  - Defaecation urgency [None]
